FAERS Safety Report 25390763 (Version 2)
Quarter: 2025Q2

REPORT INFORMATION
  Report Type: Spontaneous
  Country: US (occurrence: US)
  Receive Date: 20250603
  Receipt Date: 20250606
  Transmission Date: 20250717
  Serious: No
  Sender: BAYER HEALTHCARE PHARMACEUTICALS INC.
  Company Number: US-BAYER-2025A072812

PATIENT
  Age: 57 Year
  Sex: Female

DRUGS (5)
  1. ESTRADIOL [Suspect]
     Active Substance: ESTRADIOL
     Route: 062
     Dates: start: 2022
  2. PROGESTERONE [Concomitant]
     Active Substance: PROGESTERONE
  3. BYSTOLIC [Concomitant]
     Active Substance: NEBIVOLOL HYDROCHLORIDE
  4. SYNTHROID [Concomitant]
     Active Substance: LEVOTHYROXINE SODIUM
  5. TRIAMTERENE [Concomitant]
     Active Substance: TRIAMTERENE

REACTIONS (2)
  - Product dose omission issue [None]
  - Device adhesion issue [None]

NARRATIVE: CASE EVENT DATE: 20250501
